FAERS Safety Report 7734821-4 (Version None)
Quarter: 2011Q3

REPORT INFORMATION
  Report Type: 
  Country: None (occurrence: None)
  Receive Date: 20110907
  Receipt Date: 20110824
  Transmission Date: 20111222
  Serious: Yes (Hospitalization, Disabling)
  Sender: FDA-Public Use
  Company Number: JP-GENENTECH-323665

PATIENT
  Sex: Male

DRUGS (7)
  1. VIGAMOX [Concomitant]
     Indication: PRODUCT USED FOR UNKNOWN INDICATION
     Dosage: UNK
     Dates: start: 20090601, end: 20101201
  2. RANIBIZUMAB [Suspect]
     Dosage: 0.05 ML, UNKNOWN
     Route: 031
     Dates: start: 20100810
  3. VISUDYNE [Concomitant]
     Indication: PRODUCT USED FOR UNKNOWN INDICATION
     Dosage: UNK
     Dates: start: 20090610, end: 20090610
  4. SELBEX [Concomitant]
     Indication: PRODUCT USED FOR UNKNOWN INDICATION
     Dosage: UNK
     Dates: start: 20090609, end: 20090612
  5. RANIBIZUMAB [Suspect]
     Dosage: 0.05 ML, UNKNOWN
     Route: 031
     Dates: start: 20101207
  6. RANIBIZUMAB [Suspect]
     Indication: AGE-RELATED MACULAR DEGENERATION
     Dosage: 0.05 ML, UNKNOWN
     Route: 031
     Dates: start: 20090609
  7. FLOMOX [Concomitant]
     Indication: PRODUCT USED FOR UNKNOWN INDICATION
     Dosage: UNK
     Dates: start: 20090609, end: 20090612

REACTIONS (1)
  - RETINAL HAEMORRHAGE [None]
